FAERS Safety Report 7957339-2 (Version None)
Quarter: 2011Q4

REPORT INFORMATION
  Report Type: 
  Country: None (occurrence: None)
  Receive Date: 20111205
  Receipt Date: 20111114
  Transmission Date: 20120403
  Serious: No
  Sender: FDA-Public Use
  Company Number: US-BAYER-2011-110875

PATIENT
  Age: 52 Year
  Sex: Male
  Weight: 70 kg

DRUGS (3)
  1. MULTI-VITAMINS [Concomitant]
  2. ALEVE (CAPLET) [Suspect]
     Indication: ANALGESIC THERAPY
     Dosage: 3 DF, QD
     Route: 048
     Dates: start: 20111024, end: 20111031
  3. RANITIDINE [Concomitant]

REACTIONS (1)
  - ABDOMINAL DISCOMFORT [None]
